FAERS Safety Report 6918228-5 (Version None)
Quarter: 2010Q3

REPORT INFORMATION
  Report Type: 
  Country: None (occurrence: None)
  Receive Date: 20100811
  Receipt Date: 20100809
  Transmission Date: 20110219
  Serious: Yes (Other)
  Sender: FDA-Public Use
  Company Number: US-ASTRAZENECA-2007UW21521

PATIENT
  Age: 592 Month
  Sex: Female
  Weight: 102.1 kg

DRUGS (7)
  1. SEROQUEL [Suspect]
     Indication: BIPOLAR DISORDER
     Dosage: 300 MG TO 1200 MG
     Route: 048
     Dates: start: 20000101
  2. SEROQUEL [Suspect]
     Dosage: 100MG-300MG
     Route: 048
     Dates: start: 20020424
  3. NEURONTIN [Concomitant]
     Dates: start: 20010920
  4. DIPHENHYDRAMINE [Concomitant]
     Dates: start: 20010316
  5. AMBIEN [Concomitant]
     Dosage: 5MG-12.5MG
     Dates: start: 20010324
  6. BENZATROPINE [Concomitant]
     Dates: start: 20010324
  7. THIOTHIXENE [Concomitant]
     Dates: start: 20010324

REACTIONS (6)
  - BLOOD CHOLESTEROL INCREASED [None]
  - DIABETES MELLITUS [None]
  - DIABETIC NEUROPATHY [None]
  - HYPERLIPIDAEMIA [None]
  - LIMB INJURY [None]
  - OBESITY [None]
